FAERS Safety Report 8398360-2 (Version None)
Quarter: 2012Q2

REPORT INFORMATION
  Report Type: 
  Country: None (occurrence: None)
  Receive Date: 20120524
  Receipt Date: 20120510
  Transmission Date: 20120825
  Serious: Yes (Death, Hospitalization)
  Sender: FDA-Public Use
  Company Number: UTC-018700

PATIENT
  Sex: Female
  Weight: 67 kg

DRUGS (8)
  1. WARFARIN SODIUM [Concomitant]
  2. TRACLEER [Concomitant]
  3. LOPERAMIDE [Concomitant]
  4. REMODULIN [Suspect]
     Indication: PULMONARY ARTERIAL HYPERTENSION
     Dosage: 74.88 UG/KG (0.52 UG/KG, 1 IN 1 MIN), INTRAVENOUS
     Route: 042
     Dates: start: 20111019
  5. REMODULIN [Suspect]
     Indication: PULMONARY ARTERIAL HYPERTENSION
     Dosage: 74.88 UG/KG (0.52 UG/KG, 1 IN 1 MIN), INTRAVENOUS
     Route: 042
     Dates: start: 20120419
  6. VIAGRA [Concomitant]
  7. ACETAMINOPHEN [Concomitant]
  8. ALOE VERA GEL (ALOE VERA) [Concomitant]

REACTIONS (2)
  - MULTI-ORGAN FAILURE [None]
  - DISEASE COMPLICATION [None]
